FAERS Safety Report 13586674 (Version 1)
Quarter: 2017Q2

REPORT INFORMATION
  Report Type: Spontaneous
  Country: US (occurrence: US)
  Receive Date: 20170525
  Receipt Date: 20170525
  Transmission Date: 20170830
  Serious: Yes (Hospitalization)
  Sender: FDA-Public Use
  Company Number: None

PATIENT
  Age: 73 Year
  Sex: Male

DRUGS (1)
  1. CAPECITABINE 500MG TAB [Suspect]
     Active Substance: CAPECITABINE
     Indication: COLON CANCER
     Dosage: 1500MG X 14D ON 7 OFF QAM PO
     Route: 048
     Dates: start: 20161210

REACTIONS (4)
  - Muscular weakness [None]
  - Metastasis [None]
  - Dysstasia [None]
  - Fall [None]

NARRATIVE: CASE EVENT DATE: 20170522
